FAERS Safety Report 5932113-7 (Version None)
Quarter: 2008Q4

REPORT INFORMATION
  Report Type: 
  Country: None (occurrence: None)
  Receive Date: 20081027
  Receipt Date: 20081027
  Transmission Date: 20090506
  Serious: Yes (Other)
  Sender: FDA-Public Use
  Company Number: None

PATIENT
  Age: 36 Year
  Sex: Male
  Weight: 81.6475 kg

DRUGS (4)
  1. ATRIPLA [Suspect]
     Indication: HIV TEST POSITIVE
     Dosage: ONE TAB X 1 PILL
     Dates: start: 20081022
  2. WELLBUTRIN XL [Concomitant]
  3. CELEXA [Concomitant]
  4. FLOMAX [Concomitant]

REACTIONS (1)
  - ANGIOEDEMA [None]
